FAERS Safety Report 9389031 (Version 1)
Quarter: 2013Q3

REPORT INFORMATION
  Report Type: Spontaneous
  Country: CN (occurrence: CN)
  Receive Date: 20130708
  Receipt Date: 20130708
  Transmission Date: 20140515
  Serious: Yes (Death, Other)
  Sender: FDA-Public Use
  Company Number: CN-PFIZER INC-2013199507

PATIENT
  Sex: Female
  Weight: 39 kg

DRUGS (8)
  1. SOLU-MEDROL [Suspect]
     Dosage: 120 MG, 1X/DAY
     Route: 041
     Dates: start: 20130509, end: 20130509
  2. SOLU-MEDROL [Suspect]
     Dosage: 500 MG, 1X/DAY
     Route: 041
     Dates: start: 20130510, end: 20130511
  3. SOLU-MEDROL [Suspect]
     Dosage: 240 MG, 1X/DAY
     Route: 041
     Dates: start: 20130512, end: 20130512
  4. ENOXAPARIN [Concomitant]
     Dosage: 0.4 ML, 2X/DAY
     Route: 058
     Dates: start: 20130508, end: 20130510
  5. HEPARIN CALCIUM [Concomitant]
     Dosage: 0.4 ML, 1X/DAY
     Dates: start: 20130508, end: 20130508
  6. IMMUNOGLOBULINS [Concomitant]
     Dosage: 10 G, 1X/DAY
     Route: 041
     Dates: start: 20130510, end: 20130512
  7. ALPROSTADIL [Concomitant]
     Dosage: 20 IU, 1X/DAY
     Route: 042
     Dates: start: 20130508, end: 20130512
  8. PLATELETS, HUMAN BLOOD [Concomitant]
     Dosage: 10 IU, 1X/DAY
     Route: 041
     Dates: start: 20130510, end: 20130510

REACTIONS (10)
  - Pulmonary embolism [Fatal]
  - Cardiac failure acute [Fatal]
  - Cardio-respiratory arrest [Fatal]
  - Neoplasm malignant [Fatal]
  - Systemic lupus erythematosus [Fatal]
  - Thrombocytopenia [Fatal]
  - Pneumonia [Fatal]
  - Gastritis [Fatal]
  - Hyperlipidaemia [Fatal]
  - Hypokalaemia [Fatal]
